FAERS Safety Report 9955832 (Version 2)
Quarter: 2014Q4

REPORT INFORMATION
  Report Type: Spontaneous
  Country: AR (occurrence: AR)
  Receive Date: 20140304
  Receipt Date: 20141215
  Transmission Date: 20150529
  Serious: Yes (Other)
  Sender: FDA-Public Use
  Company Number: AR-PFIZER INC-2014058346

PATIENT
  Age: 9 Year
  Sex: Male

DRUGS (1)
  1. XYNTHA [Suspect]
     Active Substance: ANTIHEMOPHILIC FACTOR, HUMAN RECOMBINANT RESIDUES 743-1636 DELETED
     Dosage: 500 IU,3 TIMES A WEEK
     Dates: start: 20120611

REACTIONS (3)
  - Haemorrhage [Unknown]
  - Haematoma [Unknown]
  - Haemarthrosis [Unknown]

NARRATIVE: CASE EVENT DATE: 201402
